FAERS Safety Report 5340927-X (Version None)
Quarter: 2007Q2

REPORT INFORMATION
  Report Type: 
  Country: None (occurrence: None)
  Receive Date: 20070405
  Receipt Date: 20061102
  Transmission Date: 20071010
  Serious: No
  Sender: FDA-Public Use
  Company Number: US200605005673

PATIENT
  Age: 49 Year
  Sex: Male

DRUGS (8)
  1. CYMBALTA [Suspect]
     Indication: NERVE INJURY
     Dosage: SEE IMAGE
     Dates: start: 20050901, end: 20060524
  2. BACLOFEN [Concomitant]
  3. CLONAZEPAM [Concomitant]
  4. OXYCODONE HCL [Concomitant]
  5. ETODOLAC [Concomitant]
  6. SIMVASTATIN [Concomitant]
  7. SERTRALINE [Concomitant]
  8. LITHIUM CARBONATE [Concomitant]

REACTIONS (8)
  - ABDOMINAL PAIN UPPER [None]
  - IMPAIRED SELF-CARE [None]
  - MICTURITION DISORDER [None]
  - MOBILITY DECREASED [None]
  - MUSCLE SPASMS [None]
  - MUSCULOSKELETAL PAIN [None]
  - MYALGIA [None]
  - PARAESTHESIA [None]
